FAERS Safety Report 5426717-8 (Version None)
Quarter: 2007Q3

REPORT INFORMATION
  Report Type: 
  Country: None (occurrence: None)
  Receive Date: 20070731
  Receipt Date: 20070502
  Transmission Date: 20080115
  Serious: No
  Sender: FDA-Public Use
  Company Number: US200705000857

PATIENT
  Age: 66 Year
  Sex: Female
  Weight: 81.6 kg

DRUGS (5)
  1. BYETTA [Suspect]
     Indication: TYPE 2 DIABETES MELLITUS
     Dosage: 5 UG, 2/D, SUBCUTANEOUS
     Route: 058
     Dates: start: 20070304
  2. EXENATIDE 5MCG PEN, DISPOSABLE DEVICE (EXENATIDE PEN (5MCG)) PEN, DISP [Concomitant]
  3. LANTUS [Concomitant]
  4. HUMALOG [Concomitant]
  5. GLUCOVANCE [Concomitant]

REACTIONS (4)
  - ALOPECIA [None]
  - DECREASED APPETITE [None]
  - RASH [None]
  - SKIN DISORDER [None]
